FAERS Safety Report 5028155-9 (Version None)
Quarter: 2006Q2

REPORT INFORMATION
  Report Type: 
  Country: None (occurrence: None)
  Receive Date: 20060609
  Receipt Date: 20060531
  Transmission Date: 20061013
  Serious: Yes (Death, Life-Threatening, Hospitalization, Other)
  Sender: FDA-Public Use
  Company Number: 2003-08-1954

PATIENT
  Age: 45 Year
  Sex: Male
  Weight: 75 kg

DRUGS (15)
  1. TEMODAR [Suspect]
     Indication: GLIOBLASTOMA MULTIFORME
     Dosage: SEE IMAGE
     Route: 048
     Dates: start: 20021120, end: 20030117
  2. TEMODAR [Suspect]
     Indication: GLIOBLASTOMA MULTIFORME
     Dosage: SEE IMAGE
     Route: 048
     Dates: start: 20030212, end: 20030401
  3. TEMODAR [Suspect]
     Indication: GLIOBLASTOMA MULTIFORME
     Dosage: SEE IMAGE
     Route: 048
     Dates: start: 20030507, end: 20030512
  4. RADIATION THERAPY [Suspect]
     Indication: GLIOBLASTOMA MULTIFORME
     Dosage: 60 GY X-RAY THERAPY
     Dates: start: 20021120, end: 20030117
  5. DILANTIN [Concomitant]
  6. TEGRETOL [Concomitant]
  7. PEPCID [Concomitant]
  8. ATIVAN [Concomitant]
  9. ZOFRAN [Concomitant]
  10. NEURONTIN [Concomitant]
  11. PENTAMIDINE ISETHIONATE [Concomitant]
  12. PROCHLORPERAZINE [Concomitant]
  13. PARACETAMOL [Concomitant]
  14. RANITIDINE [Concomitant]
  15. DEXAMETHASONE TAB [Concomitant]

REACTIONS (8)
  - APLASTIC ANAEMIA [None]
  - BONE MARROW FAILURE [None]
  - CYTOMEGALOVIRUS VIRAEMIA [None]
  - MALAISE [None]
  - MYELITIS TRANSVERSE [None]
  - PANCYTOPENIA [None]
  - PARAPLEGIA [None]
  - WEIGHT DECREASED [None]
